FAERS Safety Report 5758766-4 (Version None)
Quarter: 2008Q2

REPORT INFORMATION
  Report Type: 
  Country: None (occurrence: None)
  Receive Date: 20080602
  Receipt Date: 20080519
  Transmission Date: 20081010
  Serious: Yes (Life-Threatening)
  Sender: FDA-Public Use
  Company Number: 2008013745

PATIENT
  Age: 15 Year
  Sex: Male

DRUGS (1)
  1. CETIRIZINE HCL [Suspect]
     Indication: DERMATITIS ATOPIC
     Dosage: 10 MG, ORAL
     Route: 048
     Dates: end: 20080519

REACTIONS (3)
  - ELECTROCARDIOGRAM QT PROLONGED [None]
  - ELECTROCARDIOGRAM T WAVE ABNORMAL [None]
  - ELECTROCARDIOGRAM U-WAVE ABNORMALITY [None]
